FAERS Safety Report 22722575 (Version 4)
Quarter: 2024Q1

REPORT INFORMATION
  Report Type: Other
  Country: BG (occurrence: None)
  Receive Date: 20230719
  Receipt Date: 20240214
  Transmission Date: 20240409
  Serious: Yes (Death)
  Sender: FDA-Public Use
  Company Number: BG-ROCHE-3390253

PATIENT
  Age: 79 Year
  Sex: Female
  Weight: 79 kg

DRUGS (46)
  1. HERCEPTIN [Suspect]
     Active Substance: TRASTUZUMAB
     Indication: HER2 positive breast cancer
     Route: 041
     Dates: start: 20180613, end: 20190103
  2. HERCEPTIN [Suspect]
     Active Substance: TRASTUZUMAB
     Route: 041
     Dates: start: 20190319, end: 20190412
  3. PERJETA [Suspect]
     Active Substance: PERTUZUMAB
     Indication: HER2 positive breast cancer
     Route: 042
     Dates: start: 20180614, end: 20180614
  4. PERJETA [Suspect]
     Active Substance: PERTUZUMAB
     Route: 042
     Dates: start: 20180705, end: 20190103
  5. PERJETA [Suspect]
     Active Substance: PERTUZUMAB
     Route: 042
     Dates: start: 20190412, end: 20230714
  6. TAXOTERE [Suspect]
     Active Substance: DOCETAXEL
     Indication: HER2 positive breast cancer
     Route: 042
     Dates: start: 20180613, end: 20181124
  7. HERCEPTIN [Suspect]
     Active Substance: TRASTUZUMAB
     Indication: HER2 positive breast cancer
     Route: 058
     Dates: start: 20190412, end: 20230714
  8. ZOLOFT [Concomitant]
     Active Substance: SERTRALINE HYDROCHLORIDE
     Dosage: ONGOING = CHECKED
  9. VALTENSIN PLUS [Concomitant]
     Dosage: ONGOING = CHECKED
  10. TRIFAS [Concomitant]
     Dosage: ONGOING = CHECKED
     Dates: start: 20210703
  11. APIRI [Concomitant]
     Indication: Pericarditis
     Dosage: ONGOING = CHECKED
     Dates: start: 20210920
  12. BISOR (BULGARIA) [Concomitant]
     Indication: Pericarditis
     Dosage: ONGOING = CHECKED
     Dates: start: 20210920
  13. DOXAZOSIN [Concomitant]
     Active Substance: DOXAZOSIN MESYLATE
     Indication: Pericarditis
     Dosage: ONGOING = CHECKED
     Dates: start: 20210920
  14. FUROSEMIDE [Concomitant]
     Active Substance: FUROSEMIDE
     Indication: Pericarditis
     Dosage: ONGOING = CHECKED
     Dates: start: 20210920
  15. LANZACID [Concomitant]
     Indication: Pericarditis
     Dosage: ONGOING = CHECKED
     Dates: start: 20210920
  16. PRETIMECTAL [Concomitant]
     Indication: Pericarditis
     Dosage: ONGOING = CHECKED
     Dates: start: 20210920
  17. ROSSTA [Concomitant]
     Indication: Pericarditis
     Dosage: ONGOING = CHECKED
     Dates: start: 20210920
  18. SPIRONOLACTONE [Concomitant]
     Active Substance: SPIRONOLACTONE
     Indication: Pericarditis
     Dosage: ONGOING = CHECKED
     Dates: start: 20210920
  19. ZOLOFT [Concomitant]
     Active Substance: SERTRALINE HYDROCHLORIDE
  20. XYZAL [Concomitant]
     Active Substance: LEVOCETIRIZINE DIHYDROCHLORIDE
  21. OLMESTA [Concomitant]
  22. MEDAXON (BULGARIA) [Concomitant]
  23. LECALPIN [Concomitant]
  24. DEHYDRATIN NEO [Concomitant]
  25. TRIFAS [Concomitant]
  26. FUROSER [Concomitant]
  27. CEFTRIAXONE [Concomitant]
     Active Substance: CEFTRIAXONE\CEFTRIAXONE SODIUM
  28. IBUPROFEN [Concomitant]
     Active Substance: IBUPROFEN
  29. NADROPARIN CALCIUM [Concomitant]
     Active Substance: NADROPARIN CALCIUM
  30. LEVOR [Concomitant]
  31. SERUM GLUCOSAE [Concomitant]
  32. BUTYLSCOPOLAMINE [Concomitant]
     Active Substance: BUTYLSCOPOLAMINE
  33. OMEPRAZOLE [Concomitant]
     Active Substance: OMEPRAZOLE
  34. METHYLPREDNISOLONE [Concomitant]
     Active Substance: METHYLPREDNISOLONE
  35. TRAMALGIN [Concomitant]
  36. CIPROFLOXACIN [Concomitant]
     Active Substance: CIPROFLOXACIN
  37. PANCEF (BULGARIA) [Concomitant]
  38. CEFOPERAZONE\SULBACTAM [Concomitant]
     Active Substance: CEFOPERAZONE\SULBACTAM
  39. CIPROFLOXACIN [Concomitant]
     Active Substance: CIPROFLOXACIN
  40. FUNGOLON [Concomitant]
  41. BRONCHOMAX [Concomitant]
  42. IMOMED [Concomitant]
  43. SACCHAROMYCES CEREVISIAE [Concomitant]
     Active Substance: SACCHAROMYCES CEREVISIAE
  44. SALOFALK [Concomitant]
  45. METRONIDAZOLE [Concomitant]
     Active Substance: METRONIDAZOLE
  46. PAMATON [Concomitant]

REACTIONS (1)
  - Myocardial infarction [Fatal]

NARRATIVE: CASE EVENT DATE: 20230716
